FAERS Safety Report 9607255 (Version 2)
Quarter: 2013Q4

REPORT INFORMATION
  Report Type: Spontaneous
  Country: US (occurrence: US)
  Receive Date: 20131009
  Receipt Date: 20131009
  Transmission Date: 20140711
  Serious: Yes (Other)
  Sender: FDA-Public Use
  Company Number: US-AMGEN-USASP2013069361

PATIENT
  Age: 76 Year
  Sex: Female

DRUGS (6)
  1. PROLIA [Suspect]
     Indication: OSTEOPENIA
     Dosage: UNK
     Route: 065
     Dates: start: 201303
  2. PROLIA [Suspect]
     Indication: OSTEOPOROSIS POSTMENOPAUSAL
  3. LEVOTHYROXINE [Concomitant]
  4. SIMVASTATIN [Concomitant]
  5. VITAMINS /90003601/ [Concomitant]
  6. BENTYL [Concomitant]
     Indication: GASTROINTESTINAL DISORDER
     Dosage: 20 MG, QID

REACTIONS (11)
  - Activities of daily living impaired [Not Recovered/Not Resolved]
  - Back pain [Not Recovered/Not Resolved]
  - Abdominal discomfort [Unknown]
  - Confusional state [Unknown]
  - Musculoskeletal discomfort [Unknown]
  - Bunion [Unknown]
  - Arthropathy [Unknown]
  - Arthralgia [Unknown]
  - Inflammation [Recovered/Resolved]
  - Device failure [Unknown]
  - Erythema [Recovered/Resolved]
